FAERS Safety Report 21831246 (Version 3)
Quarter: 2023Q1

REPORT INFORMATION
  Report Type: Spontaneous
  Country: US (occurrence: US)
  Receive Date: 20230106
  Receipt Date: 20230206
  Transmission Date: 20230417
  Serious: Yes (Hospitalization, Other)
  Sender: FDA-Public Use
  Company Number: US-PFIZER INC-PV202200129039

PATIENT
  Age: 71 Year
  Sex: Female

DRUGS (1)
  1. IBRANCE [Suspect]
     Active Substance: PALBOCICLIB
     Indication: Ovarian cancer
     Dosage: 125 MG

REACTIONS (9)
  - Asthenia [Unknown]
  - Cardiac failure [Unknown]
  - Off label use [Unknown]
  - Malaise [Unknown]
  - Dehydration [Unknown]
  - Pain [Unknown]
  - Fall [Unknown]
  - Haemoglobin decreased [Unknown]
  - Renal disorder [Unknown]

NARRATIVE: CASE EVENT DATE: 20221226
